FAERS Safety Report 6347204-9 (Version None)
Quarter: 2009Q3

REPORT INFORMATION
  Report Type: 
  Country: None (occurrence: None)
  Receive Date: 20090910
  Receipt Date: 20090902
  Transmission Date: 20100115
  Serious: Yes (Other)
  Sender: FDA-Public Use
  Company Number: PHHY2009BR37641

PATIENT
  Sex: Male
  Weight: 34 kg

DRUGS (4)
  1. RITALIN LA [Suspect]
     Indication: DYSLEXIA
     Dosage: 1 CAPSULE DAILY
     Route: 048
     Dates: start: 20090401, end: 20090601
  2. RITALIN LA [Suspect]
     Dosage: UNK
     Route: 048
     Dates: start: 20090826
  3. RITALIN [Suspect]
     Indication: DYSLEXIA
     Dosage: HALF TABLET DAILY
     Route: 048
  4. RITALIN [Suspect]
     Dosage: TWO TABLETS DAILY
     Route: 048

REACTIONS (7)
  - DEPRESSION [None]
  - GASTRIC DISORDER [None]
  - HEADACHE [None]
  - HYPOPHAGIA [None]
  - ILL-DEFINED DISORDER [None]
  - INSOMNIA [None]
  - MALAISE [None]
